FAERS Safety Report 21962245 (Version 3)
Quarter: 2025Q1

REPORT INFORMATION
  Report Type: Report from Study
  Country: US (occurrence: US)
  Receive Date: 20230207
  Receipt Date: 20250115
  Transmission Date: 20250409
  Serious: No
  Sender: HRA PHARMA
  Company Number: US-HRARD-2021000216

PATIENT
  Age: 61 Year
  Sex: Female

DRUGS (9)
  1. LYSODREN [Suspect]
     Active Substance: MITOTANE
     Indication: Adrenal gland cancer
     Route: 048
     Dates: start: 20200429
  2. LYSODREN [Suspect]
     Active Substance: MITOTANE
     Indication: Adrenal gland cancer
     Dosage: 1000 MG THREE TIMES A DAY (TID)
     Route: 048
     Dates: start: 20201230
  3. LYSODREN [Suspect]
     Active Substance: MITOTANE
     Indication: Adrenal gland cancer
     Dosage: 500 MG; 2 TABLETS THREE TIMES DAILY
     Route: 048
     Dates: start: 20210105
  4. centrum tab silver [Concomitant]
     Indication: Product used for unknown indication
  5. vitamin c tab 250mg [Concomitant]
     Indication: Product used for unknown indication
  6. vitamin d cap 400unit [Concomitant]
     Indication: Product used for unknown indication
  7. zinc cap 220mg [Concomitant]
     Indication: Product used for unknown indication
  8. toprol xl tab 25mg [Concomitant]
     Indication: Product used for unknown indication
  9. tylenol tab 500mg [Concomitant]
     Indication: Product used for unknown indication

REACTIONS (4)
  - Dyspepsia [Not Recovered/Not Resolved]
  - Nausea [Not Recovered/Not Resolved]
  - Diarrhoea [Not Recovered/Not Resolved]
  - Hot flush [Not Recovered/Not Resolved]

NARRATIVE: CASE EVENT DATE: 20210101
